FAERS Safety Report 8811966 (Version 1)
Quarter: 2012Q4

REPORT INFORMATION
  Report Type: Spontaneous
  Country: IT (occurrence: None)
  Receive Date: 20120924
  Receipt Date: 20120924
  Transmission Date: 20130627
  Serious: Yes (Life-Threatening)
  Sender: FDA-Public Use
  Company Number: 1416523

PATIENT
  Age: 65 Year
  Sex: Female
  Weight: 60 kg

DRUGS (2)
  1. CARBOPLATIN [Suspect]
     Indication: OVARIAN CANCER
     Dosage: 320 Mg milligram(s), Cyclical, Intravenous
     Route: 041
     Dates: start: 20120522, end: 20120904
  2. PACLITAXEL [Suspect]
     Dosage: 240 Mg milligram(s), Cyclical, Intravenous
     Route: 042
     Dates: start: 20120522, end: 20120904

REACTIONS (4)
  - Cardiac failure [None]
  - Angiopathy [None]
  - Loss of consciousness [None]
  - Bronchospasm [None]
